FAERS Safety Report 11174550 (Version 1)
Quarter: 2015Q2

REPORT INFORMATION
  Report Type: Spontaneous
  Country: AT (occurrence: None)
  Receive Date: 20150605
  Receipt Date: 20150605
  Transmission Date: 20150821
  Serious: Yes (Other)
  Sender: FDA-Public Use
  Company Number: AU-ALSI-201500110

PATIENT
  Age: 16 Month
  Sex: Male

DRUGS (5)
  1. LIDOCAINE. [Concomitant]
     Active Substance: LIDOCAINE
  2. TETRACAINE [Concomitant]
     Active Substance: TETRACAINE\TETRACAINE HYDROCHLORIDE
  3. NITROUS OXIDE. [Suspect]
     Active Substance: NITROUS OXIDE
     Indication: SEDATION
     Dosage: 70% TOTAL RESPIRATORY
  4. OXYGEN. [Concomitant]
     Active Substance: OXYGEN
  5. EPINEPHRINE. [Concomitant]
     Active Substance: EPINEPHRINE

REACTIONS (3)
  - Cyanosis [None]
  - Aspiration [None]
  - Laryngospasm [None]
